FAERS Safety Report 5427328-0 (Version None)
Quarter: 2007Q3

REPORT INFORMATION
  Report Type: 
  Country: None (occurrence: None)
  Receive Date: 20070828
  Receipt Date: 20070820
  Transmission Date: 20080115
  Serious: Yes (Hospitalization, Other)
  Sender: FDA-Public Use
  Company Number: PHBS2007JP11581

PATIENT
  Age: 37 Year
  Sex: Male

DRUGS (2)
  1. TEGRETOL [Suspect]
     Indication: HYPOAESTHESIA
     Dosage: 100 MG, 6QD
     Route: 048
  2. TEGRETOL [Suspect]
     Dosage: 300 MG/DAY
     Route: 048

REACTIONS (4)
  - BLOOD ALKALINE PHOSPHATASE INCREASED [None]
  - CHOLANGITIS [None]
  - GAMMA-GLUTAMYLTRANSFERASE INCREASED [None]
  - ILEUS [None]
